FAERS Safety Report 25376928 (Version 1)
Quarter: 2025Q2

REPORT INFORMATION
  Report Type: Report from Study
  Country: CA (occurrence: CA)
  Receive Date: 20250530
  Receipt Date: 20250530
  Transmission Date: 20250717
  Serious: Yes (Other)
  Sender: SANDOZ
  Company Number: CA-SANDOZ-SDZ2025CA037192

PATIENT
  Age: 19 Year
  Sex: Male

DRUGS (1)
  1. OMNITROPE [Suspect]
     Active Substance: SOMATROPIN
     Indication: Growth hormone deficiency
     Dosage: 1 MG, QD
     Route: 058

REACTIONS (2)
  - Pneumonia [Unknown]
  - Device use issue [Unknown]

NARRATIVE: CASE EVENT DATE: 20250501
